FAERS Safety Report 5073471-8 (Version None)
Quarter: 2006Q3

REPORT INFORMATION
  Report Type: 
  Country: None (occurrence: None)
  Receive Date: 20060808
  Receipt Date: 20051020
  Transmission Date: 20061208
  Serious: Yes (Hospitalization, Other)
  Sender: FDA-Public Use
  Company Number: US-BRISTOL-MYERS SQUIBB COMPANY-13152418

PATIENT
  Age: 80 Year
  Sex: Male

DRUGS (5)
  1. ERBITUX [Suspect]
     Indication: COLORECTAL CANCER METASTATIC
     Dosage: THERAPY START DATE 12-OCT-05.
     Route: 042
     Dates: start: 20051019, end: 20051019
  2. IRINOTECAN HCL [Suspect]
     Indication: COLORECTAL CANCER METASTATIC
     Dosage: FIRST DOSE.
     Route: 042
     Dates: start: 20051012, end: 20051012
  3. ZOCOR [Concomitant]
  4. ATENOLOL [Concomitant]
  5. COUMADIN [Concomitant]
     Indication: ATRIAL FIBRILLATION

REACTIONS (3)
  - DIARRHOEA [None]
  - ENTEROCOLITIS [None]
  - FEBRILE NEUTROPENIA [None]
